FAERS Safety Report 4719516-3 (Version None)
Quarter: 2005Q3

REPORT INFORMATION
  Report Type: 
  Country: None (occurrence: None)
  Receive Date: 20050719
  Receipt Date: 20050719
  Transmission Date: 20060218
  Serious: Yes (Death)
  Sender: FDA-Public Use
  Company Number: None

PATIENT
  Age: 82 Year
  Sex: Female
  Weight: 40.8237 kg

DRUGS (2)
  1. FENTANYL [Suspect]
     Dates: start: 20030210, end: 20030219
  2. FENTANYL [Suspect]

REACTIONS (5)
  - BACK PAIN [None]
  - COMA [None]
  - MARASMUS [None]
  - NARCOTIC INTOXICATION [None]
  - OSTEOARTHRITIS [None]
